FAERS Safety Report 21155259 (Version 1)
Quarter: 2022Q3

REPORT INFORMATION
  Report Type: Report from Study
  Country: CN (occurrence: CN)
  Receive Date: 20220801
  Receipt Date: 20220801
  Transmission Date: 20221027
  Serious: Yes (Other)
  Sender: FDA-Public Use
  Company Number: CN-GILEAD-2022-0591264

PATIENT
  Sex: Female

DRUGS (1)
  1. TENOFOVIR DISOPROXIL FUMARATE [Suspect]
     Active Substance: TENOFOVIR DISOPROXIL FUMARATE
     Indication: Hepatitis B
     Dosage: 300 MG, QD
     Route: 065

REACTIONS (2)
  - Foetal distress syndrome [Unknown]
  - Maternal exposure during pregnancy [Recovered/Resolved]
